FAERS Safety Report 26066334 (Version 1)
Quarter: 2025Q4

REPORT INFORMATION
  Report Type: Spontaneous
  Country: US (occurrence: US)
  Receive Date: 20251119
  Receipt Date: 20251119
  Transmission Date: 20260117
  Serious: No
  Sender: INCYTE
  Company Number: US-EVENT-004899

PATIENT
  Age: 20 Year

DRUGS (1)
  1. OPZELURA [Suspect]
     Active Substance: RUXOLITINIB PHOSPHATE
     Indication: Product used for unknown indication
     Dosage: 1.5 PERCENT, APPLY TO AFFECTED AREA(S) TWICE DAILY AS DIRECTED)
     Route: 065

REACTIONS (2)
  - Mental disorder [Unknown]
  - Illness [Unknown]
